FAERS Safety Report 9467186 (Version 1)
Quarter: 2013Q3

REPORT INFORMATION
  Report Type: Spontaneous
  Country: US (occurrence: US)
  Receive Date: 20130821
  Receipt Date: 20130821
  Transmission Date: 20140515
  Serious: No
  Sender: FDA-Public Use
  Company Number: US-B.I. PHARMACEUTICALS,INC./RIDGEFIELD-2013-BI-24840BP

PATIENT
  Age: 77 Year
  Sex: Female
  Weight: 56 kg

DRUGS (6)
  1. COMBIVENT [Suspect]
     Indication: EMPHYSEMA
     Dosage: STRENGTH: 20 MCG / 100 MCG; DAILY DOSE: 80 MCG/400 MCG
     Route: 055
     Dates: start: 201307
  2. COMBIVENT [Suspect]
     Indication: EMPHYSEMA
     Dosage: STRENGTH: 18 MCG / 103 MCG; DAILY DOSE: 144 MCG/824 MCG
     Route: 055
     Dates: start: 201301, end: 201307
  3. RED YEAST RICE [Concomitant]
     Indication: BLOOD CHOLESTEROL INCREASED
     Route: 048
  4. OMEPRAZOLE [Concomitant]
     Indication: GASTROOESOPHAGEAL REFLUX DISEASE
     Route: 048
  5. NIFEDICAL XL [Concomitant]
     Indication: HYPERTENSION
     Dosage: 30 MG
     Route: 048
  6. TEMAZEPAM [Concomitant]
     Indication: INSOMNIA
     Dosage: 15 MG
     Route: 048

REACTIONS (6)
  - Oxygen saturation decreased [Not Recovered/Not Resolved]
  - Wheezing [Not Recovered/Not Resolved]
  - Dyspnoea [Not Recovered/Not Resolved]
  - Decreased appetite [Recovered/Resolved]
  - Fatigue [Recovered/Resolved]
  - Heart rate increased [Not Recovered/Not Resolved]
